FAERS Safety Report 15812873 (Version 1)
Quarter: 2019Q1

REPORT INFORMATION
  Report Type: Spontaneous
  Country: DE (occurrence: DE)
  Receive Date: 20190111
  Receipt Date: 20190111
  Transmission Date: 20190417
  Serious: Yes (Other)
  Sender: FDA-Public Use
  Company Number: DE-OTSUKA-2019_000462

PATIENT
  Age: 33 Year
  Sex: Female
  Weight: 65 kg

DRUGS (2)
  1. ABILIFY [Suspect]
     Active Substance: ARIPIPRAZOLE
     Indication: PSYCHOTIC DISORDER
     Dosage: 5 [MG/D ]/ ALTERNATING 2.5 OR 5 MG/D
     Route: 048
     Dates: start: 20170926, end: 20180526
  2. FOLSAN [Concomitant]
     Active Substance: FOLIC ACID
     Indication: PROPHYLAXIS OF NEURAL TUBE DEFECT
     Dosage: 5 MG, QD
     Route: 048
     Dates: start: 20170926, end: 20180526

REACTIONS (3)
  - Gestational diabetes [Recovered/Resolved]
  - Exposure during pregnancy [Unknown]
  - Product use in unapproved indication [Unknown]

NARRATIVE: CASE EVENT DATE: 20170926
